FAERS Safety Report 8492212-5 (Version None)
Quarter: 2012Q3

REPORT INFORMATION
  Report Type: 
  Country: None (occurrence: None)
  Receive Date: 20120706
  Receipt Date: 20120703
  Transmission Date: 20120928
  Serious: No
  Sender: FDA-Public Use
  Company Number: US-PFIZER INC-2012159824

PATIENT
  Sex: Male

DRUGS (2)
  1. CAMPTOSAR [Suspect]
     Indication: COLON CANCER
     Dosage: 325 MG, EVERY 2 WEEKS
     Dates: start: 20110216
  2. SUTENT [Suspect]
     Dosage: UNK

REACTIONS (1)
  - PLATELET DISORDER [None]
